FAERS Safety Report 4895938-5 (Version None)
Quarter: 2006Q1

REPORT INFORMATION
  Report Type: 
  Country: None (occurrence: None)
  Receive Date: 20060125
  Receipt Date: 20060112
  Transmission Date: 20060701
  Serious: Yes (Hospitalization)
  Sender: FDA-Public Use
  Company Number: 2005091762

PATIENT
  Age: 15 Year
  Sex: Female
  Weight: 46 kg

DRUGS (5)
  1. ACTIFED JOUR ET NUIT (DAY) (PARACETAMOL, PSEUDOEPHEDRINE) [Suspect]
     Indication: NASOPHARYNGITIS
     Dosage: 3 TABS PER DAY FOR 3 DAYS, ORAL
     Route: 048
     Dates: start: 20050523, end: 20050525
  2. ACTIFED [Suspect]
     Indication: NASOPHARYNGITIS
     Dosage: 3 TABS PER DAY FOR 3 DAYS, ORAL
     Route: 048
     Dates: start: 20050523, end: 20050525
  3. ACTIFED RHUME (PARACETAMOL, PSEUDOEPHEDRINE HYDROCHLORIDE, TRIPROLIDIN [Suspect]
     Indication: NASOPHARYNGITIS
     Dosage: 3 TABS PER DAY FOR 3 DAYS, ORAL
     Route: 048
     Dates: start: 20050521, end: 20050522
  4. ZINC GLUCONATE (ZINC GLUCONATE) [Concomitant]
  5. ERYTHROMYCIN [Concomitant]

REACTIONS (3)
  - HEMIPARESIS [None]
  - ISCHAEMIC STROKE [None]
  - SINUS ARRHYTHMIA [None]
